FAERS Safety Report 6311829-7 (Version None)
Quarter: 2009Q3

REPORT INFORMATION
  Report Type: 
  Country: None (occurrence: None)
  Receive Date: 20090817
  Receipt Date: 20090810
  Transmission Date: 20100115
  Serious: Yes (Hospitalization)
  Sender: FDA-Public Use
  Company Number: JP-JNJFOC-20090608150

PATIENT
  Sex: Male
  Weight: 22 kg

DRUGS (1)
  1. CONCERTA [Suspect]
     Indication: OVERDOSE
     Route: 048

REACTIONS (12)
  - ABDOMINAL PAIN [None]
  - BLOOD ALKALINE PHOSPHATASE INCREASED [None]
  - BLOOD CREATINE PHOSPHOKINASE INCREASED [None]
  - BLOOD LACTATE DEHYDROGENASE INCREASED [None]
  - DECREASED APPETITE [None]
  - DRUG DIVERSION [None]
  - HEADACHE [None]
  - MALAISE [None]
  - OVERDOSE [None]
  - PYREXIA [None]
  - RESTLESSNESS [None]
  - WHITE BLOOD CELL COUNT DECREASED [None]
